FAERS Safety Report 15100014 (Version 1)
Quarter: 2018Q3

REPORT INFORMATION
  Report Type: Spontaneous
  Country: FR (occurrence: FR)
  Receive Date: 20180703
  Receipt Date: 20180703
  Transmission Date: 20181010
  Serious: Yes (Hospitalization)
  Sender: FDA-Public Use
  Company Number: FR-ACCORD-060177

PATIENT
  Age: 59 Year
  Sex: Male
  Weight: 58 kg

DRUGS (5)
  1. INEXIUM [Concomitant]
     Active Substance: ESOMEPRAZOLE
     Dosage: ONCE IN THE EVENING
  2. CISPLATIN ACCORD [Suspect]
     Active Substance: CISPLATIN
     Indication: ADENOCARCINOMA
     Dosage: INTER?TREATMENT INTERVAL OF 21 DAYS
     Route: 042
     Dates: start: 20161215, end: 20170315
  3. PROPRANOLOL [Concomitant]
     Active Substance: PROPRANOLOL HYDROCHLORIDE
     Dosage: 20 MG ONCE IN THE MORNING AND 20 MG ONCE IN THE EVENING
  4. DOXORUBICIN TEVA [Suspect]
     Active Substance: DOXORUBICIN
     Indication: ADENOCARCINOMA
     Dosage: INTER?TREATMENT INTERVAL OF 21 DAYS
     Route: 042
     Dates: start: 20161215, end: 20170315
  5. FRAGMINE [Concomitant]
     Active Substance: DALTEPARIN SODIUM

REACTIONS (3)
  - Disseminated intravascular coagulation [Not Recovered/Not Resolved]
  - Thrombocytopenia [Not Recovered/Not Resolved]
  - Anaemia [Recovered/Resolved]

NARRATIVE: CASE EVENT DATE: 20170210
